FAERS Safety Report 8397436-3 (Version None)
Quarter: 2012Q2

REPORT INFORMATION
  Report Type: 
  Country: None (occurrence: None)
  Receive Date: 20120529
  Receipt Date: 20120529
  Transmission Date: 20120825
  Serious: Yes (Other)
  Sender: FDA-Public Use
  Company Number: None

PATIENT
  Age: 76 Year
  Sex: Male
  Weight: 77.1115 kg

DRUGS (10)
  1. DONEPEZIL HCL [Concomitant]
  2. SEROQUEL [Concomitant]
  3. PAROXETINE [Suspect]
     Indication: DEPRESSION
     Dosage: PO
     Route: 048
  4. SEROQUEL [Suspect]
     Indication: PSYCHOTIC DISORDER
     Dosage: PO
     Route: 048
  5. SIMVASTATIN [Concomitant]
  6. LISINOPRIL [Concomitant]
  7. GLIPIZIDE [Concomitant]
  8. PLAVIX [Concomitant]
  9. METOPROLOL SUCCINATE [Concomitant]
  10. METFORMIN HCL [Concomitant]

REACTIONS (3)
  - IRRITABILITY [None]
  - MOOD ALTERED [None]
  - ANGER [None]
